FAERS Safety Report 9246280 (Version 1)
Quarter: 2013Q2

REPORT INFORMATION
  Report Type: Spontaneous
  Country: US (occurrence: US)
  Receive Date: 20130422
  Receipt Date: 20130422
  Transmission Date: 20140414
  Serious: Yes (Other)
  Sender: FDA-Public Use
  Company Number: US-TEVA-399661USA

PATIENT
  Sex: 0

DRUGS (1)
  1. SPRINTEC [Suspect]
     Dosage: NORGESTIMATE:  0.25 MG/ETHINYL ESTRADIOL:  0.035 MG

REACTIONS (1)
  - Coeliac disease [Unknown]
